FAERS Safety Report 7523443-6 (Version None)
Quarter: 2011Q2

REPORT INFORMATION
  Report Type: 
  Country: None (occurrence: None)
  Receive Date: 20110603
  Receipt Date: 20110125
  Transmission Date: 20111010
  Serious: Yes (Hospitalization, Other)
  Sender: FDA-Public Use
  Company Number: US-BAYER-201027090NA

PATIENT
  Age: 36 Year
  Sex: Female
  Weight: 122.45 kg

DRUGS (2)
  1. IBUPROFEN [Suspect]
     Indication: PAIN
     Dosage: UNK UNK, PRN
  2. YASMIN [Suspect]
     Indication: CONTRACEPTION
     Dosage: UNK UNK, UNK
     Route: 048
     Dates: start: 20010101, end: 20070101

REACTIONS (5)
  - CHOLELITHIASIS [None]
  - ABDOMINAL PAIN [None]
  - POSTOPERATIVE ILEUS [None]
  - CHOLECYSTITIS CHRONIC [None]
  - CHOLESTEROSIS [None]
